FAERS Safety Report 5176957-0 (Version None)
Quarter: 2006Q4

REPORT INFORMATION
  Report Type: 
  Country: None (occurrence: None)
  Receive Date: 20061212
  Receipt Date: 20061212
  Transmission Date: 20070319
  Serious: Yes (Other)
  Sender: FDA-Public Use
  Company Number: None

PATIENT
  Age: 35 Year
  Sex: Male
  Weight: 88.905 kg

DRUGS (1)
  1. OXYCODONE 5/APAP 500 [Suspect]
     Indication: PAIN
     Dosage: 5/500 MG EVERY 4 HRS AS NEEDED FOR PAIN

REACTIONS (2)
  - DRUG INEFFECTIVE [None]
  - SOMNOLENCE [None]
